FAERS Safety Report 9709698 (Version 1)
Quarter: 2013Q4

REPORT INFORMATION
  Report Type: Spontaneous
  Country: NL (occurrence: NL)
  Receive Date: 20131126
  Receipt Date: 20131126
  Transmission Date: 20140711
  Serious: Yes (Other)
  Sender: FDA-Public Use
  Company Number: NL-ROCHE-1309789

PATIENT
  Age: 53 Year
  Sex: Male

DRUGS (4)
  1. ALTEPLASE [Suspect]
     Indication: DEEP VEIN THROMBOSIS
     Dosage: LOADING DOSE 10 MG; ONCE
     Route: 042
  2. ALTEPLASE [Suspect]
     Dosage: 90 MG,1 IN 2 HOUR
     Route: 042
  3. NADROPARINE [Suspect]
     Indication: DEEP VEIN THROMBOSIS
     Dosage: 19.000 ANTI-XA IU/ML ONCE DAILY
     Route: 065
  4. MORPHINE [Concomitant]
     Indication: PAIN
     Dosage: HIGH DOSE
     Route: 065

REACTIONS (1)
  - Reperfusion injury [Recovered/Resolved]
